FAERS Safety Report 23981209 (Version 1)
Quarter: 2024Q2

REPORT INFORMATION
  Report Type: Spontaneous
  Country: AU (occurrence: AU)
  Receive Date: 20240617
  Receipt Date: 20240617
  Transmission Date: 20240716
  Serious: Yes (Other)
  Sender: FDA-Public Use
  Company Number: AU-CHEPLA-2024007473

PATIENT
  Age: 49 Year
  Sex: Male

DRUGS (13)
  1. CLONAZEPAM [Suspect]
     Active Substance: CLONAZEPAM
     Indication: Sedation
     Route: 058
  2. CLONAZEPAM [Suspect]
     Active Substance: CLONAZEPAM
     Indication: Sedation
     Route: 058
  3. MIDAZOLAM [Suspect]
     Active Substance: MIDAZOLAM
     Indication: Sedation
     Route: 058
  4. MIDAZOLAM [Suspect]
     Active Substance: MIDAZOLAM
     Indication: Sedation
     Route: 058
  5. MIDAZOLAM [Suspect]
     Active Substance: MIDAZOLAM
     Indication: Sedation
     Route: 058
  6. MIDAZOLAM [Suspect]
     Active Substance: MIDAZOLAM
     Indication: Sedation
     Route: 030
  7. MORPHINE [Suspect]
     Active Substance: MORPHINE
     Indication: Sedation
     Route: 058
  8. MORPHINE [Suspect]
     Active Substance: MORPHINE
     Indication: Sedation
     Route: 058
  9. MORPHINE [Suspect]
     Active Substance: MORPHINE
     Indication: Sedation
     Route: 058
  10. MORPHINE [Suspect]
     Active Substance: MORPHINE
     Indication: Sedation
     Route: 030
  11. PHENOBARBITAL [Suspect]
     Active Substance: PHENOBARBITAL
     Indication: Sedation
     Route: 058
  12. PHENOBARBITAL [Suspect]
     Active Substance: PHENOBARBITAL
     Indication: Sedation
     Route: 058
  13. PHENOBARBITAL [Suspect]
     Active Substance: PHENOBARBITAL
     Indication: Sedation
     Route: 058

REACTIONS (2)
  - Cyanosis central [Unknown]
  - Off label use [Unknown]
